FAERS Safety Report 18987402 (Version 1)
Quarter: 2021Q1

REPORT INFORMATION
  Report Type: Spontaneous
  Country: US (occurrence: US)
  Receive Date: 20210309
  Receipt Date: 20210309
  Transmission Date: 20210420
  Serious: Yes (Death, Hospitalization)
  Sender: FDA-Public Use
  Company Number: None

PATIENT
  Sex: Male
  Weight: 6.8 kg

DRUGS (2)
  1. CASODEX [Suspect]
     Active Substance: BICALUTAMIDE
     Dates: end: 20210210
  2. LEUPROLIDE ACETATE 22.5MG [Suspect]
     Active Substance: LEUPROLIDE ACETATE
     Dates: end: 20210126

REACTIONS (5)
  - Apnoea [None]
  - Septic shock [None]
  - Bradycardia [None]
  - Lethargy [None]
  - Pneumonia aspiration [None]

NARRATIVE: CASE EVENT DATE: 20210210
